FAERS Safety Report 7927026-5 (Version None)
Quarter: 2011Q4

REPORT INFORMATION
  Report Type: 
  Country: None (occurrence: None)
  Receive Date: 20111118
  Receipt Date: 20111110
  Transmission Date: 20120403
  Serious: Yes (Hospitalization)
  Sender: FDA-Public Use
  Company Number: IT-BRISTOL-MYERS SQUIBB COMPANY-16229080

PATIENT
  Age: 74 Year
  Sex: Female

DRUGS (4)
  1. SINVACOR [Concomitant]
     Indication: MYOCARDIAL ISCHAEMIA
  2. MODURETIC 5-50 [Concomitant]
  3. LANOXIN [Concomitant]
     Indication: ATRIAL FIBRILLATION
  4. COUMADIN [Suspect]
     Indication: ATRIAL FIBRILLATION
     Dosage: 1 DOSAGE FORM = 1 UNIT
     Route: 048
     Dates: start: 20080101, end: 20110703

REACTIONS (1)
  - DEEP VEIN THROMBOSIS [None]
